FAERS Safety Report 4721997-6 (Version None)
Quarter: 2005Q3

REPORT INFORMATION
  Report Type: 
  Country: None (occurrence: None)
  Receive Date: 20050720
  Receipt Date: 20050708
  Transmission Date: 20060218
  Serious: Yes (Hospitalization)
  Sender: FDA-Public Use
  Company Number: 200512356BCC

PATIENT
  Age: 66 Year
  Sex: Female
  Weight: 68.0396 kg

DRUGS (5)
  1. ALEVE [Suspect]
     Indication: ARTHRALGIA
     Dosage: 440 MG ONCE ORAL
     Route: 048
     Dates: start: 19981222
  2. CALCIUM GLUCONATE [Concomitant]
  3. CENTRUM [Concomitant]
  4. ST. JOSEPH [Concomitant]
  5. PRILOSEC [Concomitant]

REACTIONS (5)
  - ABASIA [None]
  - DIPLOPIA [None]
  - DIZZINESS [None]
  - HYPOTENSION [None]
  - PRURITUS [None]
